FAERS Safety Report 6247459-5 (Version None)
Quarter: 2009Q2

REPORT INFORMATION
  Report Type: 
  Country: None (occurrence: None)
  Receive Date: 20090626
  Receipt Date: 20090613
  Transmission Date: 20091009
  Serious: Yes (Hospitalization)
  Sender: FDA-Public Use
  Company Number: FR-GENENTECH-285402

PATIENT
  Sex: Male

DRUGS (12)
  1. MABTHERA [Suspect]
     Indication: TRANSPLANT REJECTION
     Dosage: 375 MG/M2, UNK
     Route: 042
     Dates: start: 20090529, end: 20090605
  2. PROGRAF [Suspect]
     Indication: RENAL TRANSPLANT
     Dosage: 5 MG, UNK
     Route: 048
     Dates: end: 20090616
  3. CELLCEPT [Concomitant]
     Indication: DRUG USE FOR UNKNOWN INDICATION
  4. CORTICOSTEROIDS (UNK INGREDIENTS) [Concomitant]
     Indication: DRUG USE FOR UNKNOWN INDICATION
  5. IMMUNOTHERAPY NOS [Concomitant]
     Indication: DRUG USE FOR UNKNOWN INDICATION
     Dosage: UNK
     Dates: start: 20090529
  6. VASTEN [Concomitant]
     Indication: DRUG USE FOR UNKNOWN INDICATION
  7. TENORMIN [Concomitant]
     Indication: DRUG USE FOR UNKNOWN INDICATION
  8. LASIX [Concomitant]
     Indication: DRUG USE FOR UNKNOWN INDICATION
  9. TRIATEC [Concomitant]
     Indication: DRUG USE FOR UNKNOWN INDICATION
  10. CORTANCYL [Concomitant]
     Indication: DRUG USE FOR UNKNOWN INDICATION
  11. MOPRAL [Concomitant]
     Indication: DRUG USE FOR UNKNOWN INDICATION
  12. CALCIPARINE [Concomitant]
     Indication: DRUG USE FOR UNKNOWN INDICATION

REACTIONS (2)
  - COOMBS POSITIVE HAEMOLYTIC ANAEMIA [None]
  - HAEMOLYTIC ANAEMIA [None]
